FAERS Safety Report 14719032 (Version 4)
Quarter: 2018Q4

REPORT INFORMATION
  Report Type: Spontaneous
  Country: US (occurrence: US)
  Receive Date: 20180405
  Receipt Date: 20181022
  Transmission Date: 20190204
  Serious: No
  Sender: FDA-Public Use
  Company Number: US-BRISTOL-MYERS SQUIBB COMPANY-BMS-2018-030089

PATIENT
  Age: 51 Year
  Sex: Female
  Weight: 58.96 kg

DRUGS (1)
  1. ORENCIA [Suspect]
     Active Substance: ABATACEPT
     Indication: RHEUMATOID ARTHRITIS
     Dosage: 125 MG, QWK
     Route: 058
     Dates: start: 201701

REACTIONS (5)
  - Drug ineffective [Unknown]
  - Nasopharyngitis [Recovering/Resolving]
  - Therapeutic response decreased [Unknown]
  - Rheumatoid arthritis [Unknown]
  - Migraine [Unknown]

NARRATIVE: CASE EVENT DATE: 201803
